FAERS Safety Report 9607831 (Version 3)
Quarter: 2013Q4

REPORT INFORMATION
  Report Type: Report from Study
  Country: US (occurrence: US)
  Receive Date: 20131009
  Receipt Date: 20131114
  Transmission Date: 20140711
  Serious: Yes (Hospitalization, Other)
  Sender: FDA-Public Use
  Company Number: US-PURDUE-USA-2013-0107068

PATIENT
  Sex: Female

DRUGS (3)
  1. OXY CR TAB [Suspect]
     Indication: SCOLIOSIS
     Dosage: 20 MG, UNK
     Route: 048
     Dates: start: 20131013
  2. OXY CR TAB [Suspect]
     Indication: ARTHRITIS
  3. TYLENOL ARTHRITIS [Suspect]

REACTIONS (7)
  - Fall [Recovered/Resolved]
  - Head injury [Recovered/Resolved]
  - Ligament sprain [Unknown]
  - Knee operation [Unknown]
  - Breakthrough pain [Not Recovered/Not Resolved]
  - Joint injury [Unknown]
  - Confusional state [Unknown]
